FAERS Safety Report 17254801 (Version 1)
Quarter: 2020Q1

REPORT INFORMATION
  Report Type: Spontaneous
  Country: CO (occurrence: CO)
  Receive Date: 20200109
  Receipt Date: 20200109
  Transmission Date: 20200409
  Serious: Yes (Death)
  Sender: FDA-Public Use
  Company Number: US-SLATE RUN PHARMACEUTICALS-SLTR-AE-20-1

PATIENT
  Age: 42 Year
  Sex: Male

DRUGS (3)
  1. 70436-029-80 VORICONAZOLE FOR INJECTION DRY VIAL 200 MG [Suspect]
     Active Substance: VORICONAZOLE
     Indication: BRONCHOPULMONARY ASPERGILLOSIS
     Route: 042
  2. CASPOFUNGIN [Concomitant]
     Active Substance: CASPOFUNGIN
     Dosage: LOADING DOSE OF 70MG ON THE FIRST DAY
  3. AMPHOTERICIN B DEOXYCOLATE [Concomitant]
     Indication: TRICHOSPORON INFECTION

REACTIONS (8)
  - Pancytopenia [Unknown]
  - Respiratory failure [Fatal]
  - Rash papular [Unknown]
  - Drug resistance [Unknown]
  - Systemic mycosis [Fatal]
  - Lung infiltration [Unknown]
  - Pyrexia [Unknown]
  - Pulmonary mass [Unknown]
